FAERS Safety Report 5441371-7 (Version None)
Quarter: 2007Q3

REPORT INFORMATION
  Report Type: 
  Country: None (occurrence: None)
  Receive Date: 20070903
  Receipt Date: 20070827
  Transmission Date: 20080115
  Serious: Yes (Other)
  Sender: FDA-Public Use
  Company Number: PHBS2007IE03694

PATIENT

DRUGS (2)
  1. RECLAST [Suspect]
     Indication: OSTEITIS DEFORMANS
     Dosage: 4 MG, UNK
     Route: 042
     Dates: start: 20061122
  2. CALCIUM [Concomitant]
     Dosage: 500MG
     Route: 048

REACTIONS (5)
  - ASTHENIA [None]
  - GOUT [None]
  - HYPOCALCAEMIA [None]
  - MALAISE [None]
  - RESPIRATORY TRACT INFECTION [None]
